FAERS Safety Report 7581287-3 (Version None)
Quarter: 2011Q2

REPORT INFORMATION
  Report Type: 
  Country: None (occurrence: None)
  Receive Date: 20110629
  Receipt Date: 20110624
  Transmission Date: 20111010
  Serious: Yes (Hospitalization, Other)
  Sender: FDA-Public Use
  Company Number: CH-PFIZER INC-2011140474

PATIENT
  Age: 21 Year
  Sex: Female

DRUGS (3)
  1. AMITRIPTYLINE HCL [Suspect]
     Indication: NEURALGIA
  2. DULOXETINE HYDROCHLORIDE [Suspect]
     Indication: NEURALGIA
  3. PREGABALIN [Suspect]
     Indication: NEURALGIA
     Dosage: UNK

REACTIONS (3)
  - SYNCOPE [None]
  - POSTURAL ORTHOSTATIC TACHYCARDIA SYNDROME [None]
  - LOSS OF CONSCIOUSNESS [None]
